FAERS Safety Report 16222249 (Version 1)
Quarter: 2019Q2

REPORT INFORMATION
  Report Type: Spontaneous
  Country: RU (occurrence: RU)
  Receive Date: 20190422
  Receipt Date: 20190422
  Transmission Date: 20190711
  Serious: Yes (Other)
  Sender: FDA-Public Use
  Company Number: PHHY2019RU089928

PATIENT
  Age: 48 Year
  Sex: Female

DRUGS (4)
  1. NEVANAC [Suspect]
     Active Substance: NEPAFENAC
     Indication: PREOPERATIVE CARE
     Dosage: 1 GTT, TID
     Route: 047
     Dates: start: 20190412, end: 20190413
  2. MAXIDEX [Concomitant]
     Active Substance: DEXAMETHASONE
     Indication: PRODUCT USED FOR UNKNOWN INDICATION
     Route: 065
  3. CORNEREGEL [Concomitant]
     Active Substance: DEXPANTHENOL
     Indication: PRODUCT USED FOR UNKNOWN INDICATION
     Route: 065
  4. FLOXAL [Concomitant]
     Active Substance: OFLOXACIN
     Indication: PRODUCT USED FOR UNKNOWN INDICATION
     Route: 065

REACTIONS (4)
  - Tremor [Unknown]
  - Suffocation feeling [Unknown]
  - Headache [Unknown]
  - Gastrointestinal pain [Unknown]
